FAERS Safety Report 10446003 (Version 2)
Quarter: 2014Q3

REPORT INFORMATION
  Report Type: Spontaneous
  Country: US (occurrence: US)
  Receive Date: 20140910
  Receipt Date: 20140912
  Transmission Date: 20150326
  Serious: Yes (Death, Other)
  Sender: FDA-Public Use
  Company Number: US-BAXTER-2014BAX053629

PATIENT
  Age: 61 Year
  Sex: Female
  Weight: 92 kg

DRUGS (3)
  1. CALCIUM CITRATE [Suspect]
     Active Substance: CALCIUM CITRATE
     Indication: ANTICOAGULANT THERAPY
     Route: 010
     Dates: start: 20140901, end: 20140901
  2. HEPARIN [Suspect]
     Active Substance: HEPARIN SODIUM
     Indication: ANTICOAGULANT THERAPY
     Route: 010
     Dates: start: 20140901, end: 20140901
  3. PRISMASOL BGK2/0 [Suspect]
     Active Substance: ANHYDROUS DEXTROSE\LACTIC ACID\MAGNESIUM CHLORIDE\POTASSIUM CHLORIDE\SODIUM BICARBONATE\SODIUM CHLORIDE
     Indication: HAEMODIALYSIS
     Route: 010
     Dates: start: 20140901, end: 20140901

REACTIONS (4)
  - Death [Fatal]
  - Haemodialysis complication [Unknown]
  - Acidosis [Unknown]
  - Intestinal ischaemia [Unknown]
